FAERS Safety Report 20383312 (Version 2)
Quarter: 2022Q1

REPORT INFORMATION
  Report Type: Spontaneous
  Country: IT (occurrence: IT)
  Receive Date: 20220127
  Receipt Date: 20220217
  Transmission Date: 20220423
  Serious: Yes (Other)
  Sender: FDA-Public Use
  Company Number: None

PATIENT
  Age: 71 Year
  Sex: Male
  Weight: 80 kg

DRUGS (2)
  1. TASIGNA [Suspect]
     Active Substance: NILOTINIB
     Indication: Chronic myeloid leukaemia
     Dosage: 800 MG, QD (NON DISPONIBILE)
     Route: 048
     Dates: start: 20211015, end: 20211115
  2. IDROTENS [Concomitant]
     Indication: Hypertension
     Dosage: UNK
     Route: 065

REACTIONS (5)
  - Dystonia [Recovered/Resolved]
  - Constipation [Recovered/Resolved]
  - Dysuria [Recovered/Resolved]
  - Urinary incontinence [Recovered/Resolved]
  - Pruritus [Recovered/Resolved]

NARRATIVE: CASE EVENT DATE: 20211115
